FAERS Safety Report 8131279-0 (Version None)
Quarter: 2012Q1

REPORT INFORMATION
  Report Type: 
  Country: None (occurrence: None)
  Receive Date: 20120213
  Receipt Date: 20120201
  Transmission Date: 20120608
  Serious: Yes (Life-Threatening, Other)
  Sender: FDA-Public Use
  Company Number: FR-JNJFOC-20111206334

PATIENT
  Sex: Male
  Weight: 35 kg

DRUGS (4)
  1. POLARAMINE [Concomitant]
  2. HYDROCORTISONE [Concomitant]
  3. REMICADE [Suspect]
     Indication: CROHN'S DISEASE
     Dosage: APPROXIMATELY 75 ML OF SOLUTION WAS RECEIVED
     Route: 042
  4. REMICADE [Suspect]
     Route: 042
     Dates: start: 20111122, end: 20111211

REACTIONS (5)
  - PALATAL OEDEMA [None]
  - LARYNGEAL OEDEMA [None]
  - PARAESTHESIA [None]
  - INFUSION RELATED REACTION [None]
  - HYPERSENSITIVITY [None]
